FAERS Safety Report 12115430 (Version 2)
Quarter: 2016Q1

REPORT INFORMATION
  Report Type: Report from Study
  Country: PL (occurrence: PL)
  Receive Date: 20160225
  Receipt Date: 20160311
  Transmission Date: 20160526
  Serious: Yes (Hospitalization, Other)
  Sender: FDA-Public Use
  Company Number: PL-BIOGEN-2015BI134484

PATIENT
  Age: 56 Year
  Sex: Female
  Weight: 90 kg

DRUGS (2)
  1. BG00012 [Suspect]
     Active Substance: DIMETHYL FUMARATE
     Indication: MULTIPLE SCLEROSIS
     Route: 048
     Dates: start: 20101220, end: 20150925
  2. TIZANIDINE. [Concomitant]
     Active Substance: TIZANIDINE
     Indication: MUSCLE SPASTICITY
     Route: 048
     Dates: start: 20090924

REACTIONS (1)
  - Breast cancer [Not Recovered/Not Resolved]
